FAERS Safety Report 6160848-2 (Version None)
Quarter: 2009Q2

REPORT INFORMATION
  Report Type: 
  Country: None (occurrence: None)
  Receive Date: 20090420
  Receipt Date: 20090406
  Transmission Date: 20091009
  Serious: Yes (Other)
  Sender: FDA-Public Use
  Company Number: US-ROCHE-626200

PATIENT
  Age: 56 Year
  Sex: Male

DRUGS (2)
  1. RIBAVIRIN [Suspect]
     Dosage: FOR 44 WEEKS OF A PLANNED 48 WEEK TREATMENT
     Route: 048
  2. PEG-INTRON [Suspect]
     Dosage: FOR 44 WEKS OF A PLANNED 48 WEEKS TREATMENT
     Route: 065

REACTIONS (3)
  - ANAEMIA [None]
  - NEUTROPENIA [None]
  - PORPHYRIA NON-ACUTE [None]
